FAERS Safety Report 20577475 (Version 1)
Quarter: 2022Q1

REPORT INFORMATION
  Report Type: Spontaneous
  Country: DE (occurrence: DE)
  Receive Date: 20220310
  Receipt Date: 20220310
  Transmission Date: 20220423
  Serious: Yes (Other)
  Sender: FDA-Public Use
  Company Number: DE-PFIZER INC-202200360033

PATIENT

DRUGS (1)
  1. CYTOTEC [Suspect]
     Active Substance: MISOPROSTOL
     Dosage: 1 TABLET
     Dates: start: 200610, end: 200610

REACTIONS (4)
  - Foetal exposure during delivery [Unknown]
  - Autism spectrum disorder [Unknown]
  - Neonatal hypoxia [Unknown]
  - Heart sounds abnormal [Unknown]

NARRATIVE: CASE EVENT DATE: 20061001
